FAERS Safety Report 11720227 (Version 8)
Quarter: 2016Q2

REPORT INFORMATION
  Report Type: Spontaneous
  Country: IT (occurrence: IT)
  Receive Date: 20151110
  Receipt Date: 20160510
  Transmission Date: 20160815
  Serious: Yes (Other)
  Sender: FDA-Public Use
  Company Number: IT-ALEXION PHARMACEUTICALS INC.-A201504358

PATIENT
  Age: 63 Year
  Sex: Male

DRUGS (12)
  1. SOLIRIS [Suspect]
     Active Substance: ECULIZUMAB
     Dosage: 1200 MG, Q2W
     Route: 042
     Dates: start: 20141117
  2. METHYLPREDNISOLONE. [Concomitant]
     Active Substance: METHYLPREDNISOLONE
     Indication: KIDNEY TRANSPLANT REJECTION
     Dosage: 8 MG, QD
     Route: 065
     Dates: end: 201408
  3. SOLIRIS [Suspect]
     Active Substance: ECULIZUMAB
     Dosage: 900 MG, QW
     Route: 042
  4. SOLIRIS [Suspect]
     Active Substance: ECULIZUMAB
     Dosage: UNK
     Route: 042
  5. METHYLPREDNISOLONE. [Concomitant]
     Active Substance: METHYLPREDNISOLONE
     Dosage: 4 MG, QD
     Route: 065
     Dates: start: 201408
  6. SOLIRIS [Suspect]
     Active Substance: ECULIZUMAB
     Dosage: 1200 MG, Q2W
     Route: 042
  7. PROGRAF [Suspect]
     Active Substance: TACROLIMUS\TACROLIMUS ANHYDROUS
     Indication: IMMUNOSUPPRESSANT DRUG THERAPY
     Dosage: UNK
     Route: 048
     Dates: start: 201503
  8. MYCOPHENOLATE MOFETIL. [Suspect]
     Active Substance: MYCOPHENOLATE MOFETIL
     Indication: PRODUCT USED FOR UNKNOWN INDICATION
     Dosage: 1.5 G, QD
     Route: 065
     Dates: end: 20150905
  9. METHYLPREDNISOLONE. [Concomitant]
     Active Substance: METHYLPREDNISOLONE
     Dosage: 500 MG, UNK
     Route: 042
     Dates: end: 20150905
  10. SOLIRIS [Suspect]
     Active Substance: ECULIZUMAB
     Dosage: UNK, QMONTH
     Route: 042
     Dates: end: 20141117
  11. SOLIRIS [Suspect]
     Active Substance: ECULIZUMAB
     Indication: HAEMOLYTIC URAEMIC SYNDROME
     Dosage: 1200 MG, UNK
     Route: 042
     Dates: start: 20140408
  12. MYCOPHENOLATE MOFETIL. [Suspect]
     Active Substance: MYCOPHENOLATE MOFETIL
     Dosage: UNK
     Route: 065

REACTIONS (10)
  - Neutropenia [Unknown]
  - Immunosuppressant drug level decreased [Unknown]
  - Blood creatinine abnormal [Recovered/Resolved]
  - Proteinuria [Not Recovered/Not Resolved]
  - Deep vein thrombosis [Unknown]
  - Blood lactate dehydrogenase increased [Unknown]
  - Inappropriate schedule of drug administration [Recovered/Resolved]
  - Haematuria [Not Recovered/Not Resolved]
  - Incorrect dose administered [Recovered/Resolved]
  - Kidney transplant rejection [Recovering/Resolving]

NARRATIVE: CASE EVENT DATE: 201408
